FAERS Safety Report 6215218-5 (Version None)
Quarter: 2009Q2

REPORT INFORMATION
  Report Type: 
  Country: None (occurrence: None)
  Receive Date: 20090604
  Receipt Date: 20090527
  Transmission Date: 20091009
  Serious: Yes (Hospitalization)
  Sender: FDA-Public Use
  Company Number: FR-NOVOPROD-287417

PATIENT
  Age: 59 Year
  Sex: Male

DRUGS (2)
  1. NOVOMIX 30 FLEXPEN [Suspect]
     Indication: TYPE 1 DIABETES MELLITUS
     Dosage: 48 IU (20 IU IN MORNING, 28 IU IN EVENING), QD
     Route: 058
     Dates: start: 20040107, end: 20080601
  2. INSULIN GLARGINE [Concomitant]
     Indication: TYPE 1 DIABETES MELLITUS
     Dates: start: 20080601

REACTIONS (1)
  - THROMBOCYTOPENIA [None]
